FAERS Safety Report 7352819-5 (Version None)
Quarter: 2011Q1

REPORT INFORMATION
  Report Type: 
  Country: None (occurrence: None)
  Receive Date: 20110315
  Receipt Date: 20110301
  Transmission Date: 20110831
  Serious: Yes (Other)
  Sender: FDA-Public Use
  Company Number: PHHY2010MX43754

PATIENT
  Sex: Female

DRUGS (1)
  1. ACLASTA [Suspect]
     Indication: OSTEOPOROSIS
     Dosage: 5MG/ 100 ML YEARLY
     Dates: start: 20100423

REACTIONS (3)
  - AMNESIA [None]
  - ACCIDENT [None]
  - MALAISE [None]
